FAERS Safety Report 25755708 (Version 3)
Quarter: 2025Q4

REPORT INFORMATION
  Report Type: Spontaneous
  Country: US (occurrence: US)
  Receive Date: 20250903
  Receipt Date: 20251110
  Transmission Date: 20260118
  Serious: No
  Sender: NOVARTIS
  Company Number: US-ORG100013279-032946

PATIENT
  Age: 53 Year
  Sex: Female

DRUGS (1)
  1. LAMISIL [Suspect]
     Active Substance: TERBINAFINE HYDROCHLORIDE
     Indication: Product used for unknown indication
     Dosage: UNK (TOPICAL)
     Route: 065

REACTIONS (1)
  - Drug ineffective [Unknown]
